FAERS Safety Report 12487870 (Version 1)
Quarter: 2016Q2

REPORT INFORMATION
  Report Type: Spontaneous
  Country: US (occurrence: None)
  Receive Date: 20160621
  Receipt Date: 20160621
  Transmission Date: 20160815
  Serious: Yes (Other)
  Sender: FDA-Public Use
  Company Number: None

PATIENT
  Age: 43 Year
  Sex: Female

DRUGS (2)
  1. SPRINTEC [Concomitant]
     Active Substance: ETHINYL ESTRADIOL\NORGESTIMATE
  2. SPRYCEL [Suspect]
     Active Substance: DASATINIB
     Indication: NEOPLASM
     Route: 048
     Dates: start: 20150820

REACTIONS (4)
  - Muscle tightness [None]
  - Neck pain [None]
  - Palpitations [None]
  - Dyspnoea [None]

NARRATIVE: CASE EVENT DATE: 2016
